FAERS Safety Report 14402939 (Version 1)
Quarter: 2018Q1

REPORT INFORMATION
  Report Type: Spontaneous
  Country: DE (occurrence: DE)
  Receive Date: 20180117
  Receipt Date: 20180117
  Transmission Date: 20180509
  Serious: Yes (Congenital Anomaly, Other)
  Sender: FDA-Public Use
  Company Number: DE-PFIZER INC-2018020566

PATIENT
  Age: 1 Day
  Sex: Female
  Weight: 4.12 kg

DRUGS (9)
  1. OMEPRAZOLE. [Concomitant]
     Active Substance: OMEPRAZOLE
     Indication: GASTRITIS
     Dosage: 40 MG, QD, 6.4. - 7.5. GESTATIONAL WEEK
     Route: 064
     Dates: start: 20161206, end: 20161214
  2. PROGESTERONE. [Concomitant]
     Active Substance: PROGESTERONE
     Indication: PROPHYLAXIS OF ABORTION
     Dosage: 200 MG, QD, 4.3. - 12.6. GESTATIONAL WEEK
     Route: 064
     Dates: start: 20161121, end: 20170119
  3. ONDANSETRON [Concomitant]
     Active Substance: ONDANSETRON
     Indication: VOMITING IN PREGNANCY
     Dosage: 7.6. - 23.1. GESTATIONAL WEEK
     Route: 064
  4. DIMENHYDRINATE. [Concomitant]
     Active Substance: DIMENHYDRINATE
     Indication: VOMITING IN PREGNANCY
     Dosage: 6. - 23.1. GESTATIONAL WEEK
     Route: 064
  5. LEVOTHYROXINE SODIUM. [Concomitant]
     Active Substance: LEVOTHYROXINE SODIUM
     Indication: HYPOTHYROIDISM
     Dosage: 50 UG, QD, 0. - 39. GESTATIONAL WEEK
     Route: 064
     Dates: start: 20161020, end: 20170721
  6. FOLIC ACID. [Concomitant]
     Active Substance: FOLIC ACID
     Indication: PROPHYLAXIS OF NEURAL TUBE DEFECT
     Dosage: 0.4 MG, QD, 0. - 39. GESTATIONAL WEEK
     Route: 064
     Dates: start: 20161021, end: 20170721
  7. TEARS AGAIN [Concomitant]
     Indication: SJOGREN^S SYNDROME
     Dosage: 0. - 39. GESTATIONAL WEEK
     Route: 064
  8. PANTOPRAZOLE [Suspect]
     Active Substance: PANTOPRAZOLE
     Indication: GASTRITIS
     Dosage: 80 MG, QD, TRIMESTER: LONG TERM EXPOSURE
     Route: 064
  9. ACETYLSALICYLIC ACID [Concomitant]
     Active Substance: ASPIRIN
     Indication: PROPHYLAXIS OF ABORTION
     Dosage: 100 MG, QD, 4.3. - 33.6. GESTATIONAL WEEK
     Route: 064
     Dates: start: 20161121, end: 20170615

REACTIONS (3)
  - Atrial septal defect [Not Recovered/Not Resolved]
  - Large for dates baby [Recovering/Resolving]
  - Developmental hip dysplasia [Recovered/Resolved]

NARRATIVE: CASE EVENT DATE: 20170721
